FAERS Safety Report 9602585 (Version 1)
Quarter: 2013Q4

REPORT INFORMATION
  Report Type: Spontaneous
  Country: GB (occurrence: GB)
  Receive Date: 20131007
  Receipt Date: 20131007
  Transmission Date: 20140711
  Serious: Yes (Other)
  Sender: FDA-Public Use
  Company Number: GB-009507513-1310GBR001584

PATIENT
  Age: 70 Year
  Sex: Male

DRUGS (9)
  1. ALENDRONATE SODIUM [Suspect]
     Dosage: UNK
  2. RISEDRONATE SODIUM [Suspect]
     Dosage: 35 MG, QW
     Dates: start: 20130804, end: 20130804
  3. ADCAL (CALCIUM CARBONATE (+) CALCIUM GLUCONATE (+) CALCIUM LACTATE (+) [Concomitant]
     Indication: CALCIUM DEFICIENCY
     Dosage: 2 DF, QD
  4. ADCAL (CALCIUM CARBONATE (+) CALCIUM GLUCONATE (+) CALCIUM LACTATE (+) [Concomitant]
     Indication: VITAMIN D DEFICIENCY
  5. BENDROFLUMETHIAZIDE [Concomitant]
     Indication: FLUID RETENTION
     Dosage: 2.5 MG, UNK
  6. GLUCOSAMINE SULFATE [Concomitant]
  7. PARACETAMOL [Concomitant]
     Dosage: 2 DF, QD
  8. PREDNISOLONE [Concomitant]
     Indication: OSTEOARTHRITIS
     Dosage: 10 MG, QD
  9. PREDNISOLONE [Concomitant]
     Indication: RHEUMATOID ARTHRITIS

REACTIONS (7)
  - Conjunctivitis [Not Recovered/Not Resolved]
  - Eye disorder [Not Recovered/Not Resolved]
  - Melanocytic naevus [Recovered/Resolved]
  - Oral pain [Recovered/Resolved]
  - Oral mucosal exfoliation [Recovered/Resolved]
  - Scab [Recovered/Resolved]
  - Erythema [Recovered/Resolved]
